FAERS Safety Report 14129294 (Version 1)
Quarter: 2017Q4

REPORT INFORMATION
  Report Type: Report from Study
  Country: None (occurrence: DE)
  Receive Date: 20171026
  Receipt Date: 20171026
  Transmission Date: 20180321
  Serious: Yes (Other)
  Sender: FDA-Public Use
  Company Number: DE-ABBVIE-17K-062-2139651-00

PATIENT
  Age: 27 Year
  Sex: Female

DRUGS (1)
  1. HUMIRA [Suspect]
     Active Substance: ADALIMUMAB
     Indication: AXIAL SPONDYLOARTHRITIS
     Route: 058
     Dates: start: 20170627, end: 201710

REACTIONS (4)
  - Pneumonia [Recovered/Resolved]
  - Panic attack [Recovering/Resolving]
  - Nasopharyngitis [Recovered/Resolved]
  - Fear of death [Recovering/Resolving]

NARRATIVE: CASE EVENT DATE: 2017
